FAERS Safety Report 6603772-0 (Version None)
Quarter: 2010Q1

REPORT INFORMATION
  Report Type: 
  Country: None (occurrence: None)
  Receive Date: 20100226
  Receipt Date: 20090303
  Transmission Date: 20100710
  Serious: No
  Sender: FDA-Public Use
  Company Number: A0765077A

PATIENT
  Age: 14 Year
  Sex: Female

DRUGS (2)
  1. LAMICTAL CD [Suspect]
     Dosage: 25MG SINGLE DOSE
     Route: 048
     Dates: start: 20090122, end: 20090122
  2. COLACE [Concomitant]

REACTIONS (3)
  - PAIN IN EXTREMITY [None]
  - RASH [None]
  - VOMITING [None]
